FAERS Safety Report 6669714-7 (Version None)
Quarter: 2010Q2

REPORT INFORMATION
  Report Type: 
  Country: None (occurrence: None)
  Receive Date: 20100402
  Receipt Date: 20100323
  Transmission Date: 20101027
  Serious: Yes (Other)
  Sender: FDA-Public Use
  Company Number: 220026J10GBR

PATIENT
  Age: 44 Year
  Sex: Female

DRUGS (1)
  1. SAIZEN [Suspect]
     Dosage: 0.3 MG
     Dates: start: 20100215

REACTIONS (9)
  - CONTUSION [None]
  - DIABETES INSIPIDUS [None]
  - DISCOMFORT [None]
  - DRY MOUTH [None]
  - DYSGEUSIA [None]
  - DYSPEPSIA [None]
  - FATIGUE [None]
  - HEADACHE [None]
  - OEDEMA [None]
